FAERS Safety Report 8458345-4 (Version None)
Quarter: 2012Q2

REPORT INFORMATION
  Report Type: 
  Country: None (occurrence: None)
  Receive Date: 20120615
  Receipt Date: 20120531
  Transmission Date: 20120825
  Serious: No
  Sender: FDA-Public Use
  Company Number: TCI2012A01472

PATIENT
  Age: 71 Year
  Sex: Male

DRUGS (3)
  1. LYRICA [Suspect]
     Indication: NEUROPATHY PERIPHERAL
     Dosage: 75 MG (75 MG,1 IN 1 D) PER ORAL
     Route: 048
     Dates: start: 20111130
  2. ROZEREM [Suspect]
     Indication: INSOMNIA
     Dosage: 8 MG (8 MG,1 IN 1 D) PER ORAL
     Route: 048
     Dates: start: 20120307, end: 20120313
  3. ROHYPNOL (FLUNITRAZEPAM) [Suspect]
     Indication: INSOMNIA
     Dosage: 1 MG (1 MG,1 IN 1 D ) PER ORAL
     Route: 048
     Dates: start: 20090214

REACTIONS (6)
  - BLISTER [None]
  - SKIN SWELLING [None]
  - ERYTHEMA [None]
  - POTENTIATING DRUG INTERACTION [None]
  - PYREXIA [None]
  - EYELID OEDEMA [None]
